FAERS Safety Report 19525029 (Version 1)
Quarter: 2021Q3

REPORT INFORMATION
  Report Type: Spontaneous
  Country: US (occurrence: US)
  Receive Date: 20210712
  Receipt Date: 20210712
  Transmission Date: 20211014
  Serious: No
  Sender: FDA-Public Use
  Company Number: US-ASTRAZENECA-2021A550908

PATIENT
  Age: 966 Month
  Sex: Female
  Weight: 38.1 kg

DRUGS (6)
  1. SYMBICORT [Suspect]
     Active Substance: BUDESONIDE\FORMOTEROL FUMARATE DIHYDRATE
     Indication: EMPHYSEMA
     Dosage: 2 PUFFS TWICE DAILY
     Route: 055
  2. DUONEB [Concomitant]
     Active Substance: ALBUTEROL SULFATE\IPRATROPIUM BROMIDE
  3. XOPENEX [Concomitant]
     Active Substance: LEVALBUTEROL HYDROCHLORIDE
  4. BUDESONIDE/FORMOTEROL [Suspect]
     Active Substance: BUDESONIDE\FORMOTEROL
     Indication: EMPHYSEMA
     Dosage: GENERIC, 160/4.5MCG 2 PUFFS TWICE DAILY
     Route: 055
  5. BUDESONIDE/FORMOTEROL [Suspect]
     Active Substance: BUDESONIDE\FORMOTEROL
     Indication: EMPHYSEMA
     Dosage: GENERIC, 160/4.5MCG ONE PUFFS TWICE DAILY
     Route: 055
  6. IRON [Concomitant]
     Active Substance: IRON

REACTIONS (10)
  - Spinal osteoarthritis [Not Recovered/Not Resolved]
  - Product use issue [Not Recovered/Not Resolved]
  - Arthritis [Not Recovered/Not Resolved]
  - General physical health deterioration [Unknown]
  - Palpitations [Recovering/Resolving]
  - Therapeutic product effect decreased [Recovering/Resolving]
  - Product dose omission issue [Recovered/Resolved]
  - Dry mouth [Recovering/Resolving]
  - Body height decreased [Not Recovered/Not Resolved]
  - Device leakage [Unknown]

NARRATIVE: CASE EVENT DATE: 202106
